FAERS Safety Report 7288361-X (Version None)
Quarter: 2011Q1

REPORT INFORMATION
  Report Type: 
  Country: None (occurrence: None)
  Receive Date: 20110211
  Receipt Date: 20110201
  Transmission Date: 20110831
  Serious: Yes (Hospitalization)
  Sender: FDA-Public Use
  Company Number: NL-ROCHE-757680

PATIENT
  Age: 50 Year
  Sex: Female

DRUGS (2)
  1. OXALIPLATIN [Suspect]
     Dosage: FORM: INFUSION
     Route: 065
  2. XELODA [Suspect]
     Route: 065

REACTIONS (2)
  - NEUROTOXICITY [None]
  - MENINGEAL DISORDER [None]
